FAERS Safety Report 7151371-7 (Version None)
Quarter: 2010Q4

REPORT INFORMATION
  Report Type: 
  Country: None (occurrence: None)
  Receive Date: 20101210
  Receipt Date: 20101202
  Transmission Date: 20110411
  Serious: Yes (Other)
  Sender: FDA-Public Use
  Company Number: JP-PFIZER INC-2010148658

PATIENT
  Age: 64 Year
  Sex: Female

DRUGS (4)
  1. ZITHROMAX [Suspect]
     Indication: UPPER RESPIRATORY TRACT INFECTION
     Dosage: 500 MG, 1X/DAY
     Route: 048
     Dates: start: 20101115, end: 20101117
  2. SPIRIVA [Suspect]
     Dosage: 18 UG, 1X/DAY
     Dates: start: 20101115, end: 20101122
  3. MUCOSOLVAN [Concomitant]
     Indication: RESPIRATORY FUME INHALATION DISORDER
     Dosage: 15 MG, 3X/DAY
     Route: 048
     Dates: start: 20101115, end: 20101122
  4. ASVERIN [Concomitant]
     Indication: RESPIRATORY FUME INHALATION DISORDER
     Dosage: 20 MG, 3X/DAY
     Route: 048
     Dates: start: 20101115, end: 20101122

REACTIONS (2)
  - ANAPHYLACTIC REACTION [None]
  - DEAFNESS UNILATERAL [None]
